FAERS Safety Report 18389170 (Version 2)
Quarter: 2020Q4

REPORT INFORMATION
  Report Type: Spontaneous
  Country: US (occurrence: US)
  Receive Date: 20201015
  Receipt Date: 20201202
  Transmission Date: 20210114
  Serious: No
  Sender: FDA-Public Use
  Company Number: US-MERZ PHARMACEUTICALS GMBH-20-03267

PATIENT
  Age: 69 Year

DRUGS (1)
  1. ASCLERA [Suspect]
     Active Substance: POLIDOCANOL
     Indication: VARICOSE VEIN
     Dosage: UNKNOWN

REACTIONS (5)
  - Injection site warmth [Unknown]
  - Skin discolouration [Unknown]
  - Erythema [Unknown]
  - Phlebitis [Unknown]
  - Neovascularisation [Unknown]
